FAERS Safety Report 23608249 (Version 1)
Quarter: 2024Q1

REPORT INFORMATION
  Report Type: Spontaneous
  Country: US (occurrence: US)
  Receive Date: 20240307
  Receipt Date: 20240307
  Transmission Date: 20240409
  Serious: No
  Sender: FDA-Public Use
  Company Number: US-JNJFOC-20240269156

PATIENT
  Sex: Female

DRUGS (4)
  1. TECVAYLI [Suspect]
     Active Substance: TECLISTAMAB-CQYV
     Indication: Plasma cell myeloma
     Route: 065
     Dates: start: 202311
  2. TECVAYLI [Suspect]
     Active Substance: TECLISTAMAB-CQYV
     Indication: Cardiac amyloidosis
  3. DEXAMETHASONE [Concomitant]
     Active Substance: DEXAMETHASONE
  4. BENADRYL [Concomitant]
     Active Substance: DIPHENHYDRAMINE HYDROCHLORIDE

REACTIONS (6)
  - Heart rate increased [Unknown]
  - Hypotension [Unknown]
  - Dyspnoea [Unknown]
  - Pain [Unknown]
  - Adverse drug reaction [Unknown]
  - Product dose omission issue [Unknown]
